FAERS Safety Report 24290019 (Version 1)
Quarter: 2024Q3

REPORT INFORMATION
  Report Type: Spontaneous
  Country: US (occurrence: None)
  Receive Date: 20240905
  Receipt Date: 20240905
  Transmission Date: 20241016
  Serious: Yes (Other)
  Sender: Public
  Company Number: None

PATIENT
  Age: 67 Year
  Sex: Female

DRUGS (14)
  1. ADEMPAS [Suspect]
     Active Substance: RIOCIGUAT
     Indication: Pulmonary hypertension
     Dosage: FREQUENCY : TWICE A DAY;?
     Route: 048
     Dates: start: 20160405
  2. WARFARIN [Concomitant]
     Active Substance: WARFARIN
  3. ASPIRIN [Concomitant]
     Active Substance: ASPIRIN
  4. FOLIC ACID [Concomitant]
  5. TRAMADOL [Concomitant]
  6. VITAMIN D3 [Concomitant]
  7. JARDIANCE [Concomitant]
  8. SPIRONOLACTONE [Concomitant]
  9. FUROSEMIDE [Concomitant]
  10. LOSARTAN [Concomitant]
  11. POTASSIUM CHLORIDE [Concomitant]
  12. CALCITRIOL [Concomitant]
  13. ATORVASTATIN [Concomitant]
  14. DOCUSATE SODIUM [Concomitant]

REACTIONS (5)
  - Dyspnoea [None]
  - Epistaxis [None]
  - Haemoptysis [None]
  - Paranasal sinus hypersecretion [None]
  - Cardiac failure congestive [None]

NARRATIVE: CASE EVENT DATE: 20240723
